FAERS Safety Report 5023080-1 (Version None)
Quarter: 2006Q2

REPORT INFORMATION
  Report Type: 
  Country: None (occurrence: None)
  Receive Date: 20060605
  Receipt Date: 20060529
  Transmission Date: 20061013
  Serious: Yes (Other)
  Sender: FDA-Public Use
  Company Number: GXKR2006AT03048

PATIENT
  Sex: Female

DRUGS (1)
  1. CIPROFLOXACIN [Suspect]
     Indication: ENTERITIS
     Dosage: 4 TABLETS, ORAL
     Route: 048

REACTIONS (7)
  - ABASIA [None]
  - ASTHENIA [None]
  - DISTURBANCE IN ATTENTION [None]
  - HEADACHE [None]
  - LIMB DISCOMFORT [None]
  - TREATMENT NONCOMPLIANCE [None]
  - VISUAL DISTURBANCE [None]
